FAERS Safety Report 22899580 (Version 2)
Quarter: 2023Q4

REPORT INFORMATION
  Report Type: Report from Study
  Country: US (occurrence: US)
  Receive Date: 20230904
  Receipt Date: 20231018
  Transmission Date: 20240110
  Serious: Yes (Other)
  Sender: FDA-Public Use
  Company Number: US-ABBVIE-5391664

PATIENT
  Sex: Female

DRUGS (2)
  1. RINVOQ [Suspect]
     Active Substance: UPADACITINIB
     Indication: Product used for unknown indication
     Dosage: LAST ADMIN DATE 2023
     Route: 048
     Dates: start: 20230608
  2. DICYCLOMINE [Concomitant]
     Active Substance: DICYCLOMINE HYDROCHLORIDE
     Indication: Product used for unknown indication
     Dates: end: 2023

REACTIONS (4)
  - Arthritis [Not Recovered/Not Resolved]
  - Haemorrhage [Unknown]
  - Foot operation [Unknown]
  - Illness [Unknown]

NARRATIVE: CASE EVENT DATE: 20230101
